FAERS Safety Report 4485688-1 (Version None)
Quarter: 2004Q4

REPORT INFORMATION
  Report Type: 
  Country: None (occurrence: None)
  Receive Date: 20041026
  Receipt Date: 20040921
  Transmission Date: 20050328
  Serious: Yes (Other)
  Sender: FDA-Public Use
  Company Number: US-GLAXOSMITHKLINE-A0526667A

PATIENT
  Sex: Female
  Weight: 93.2 kg

DRUGS (8)
  1. LAMICTAL [Suspect]
     Indication: ILL-DEFINED DISORDER
     Dosage: 25MG PER DAY
     Route: 048
     Dates: start: 20040913, end: 20040913
  2. METHOTREXATE [Concomitant]
  3. TOPROL-XL [Concomitant]
     Dosage: 100MG TWICE PER DAY
     Route: 048
  4. MINIPRESS [Concomitant]
     Dosage: 1MG TWICE PER DAY
     Route: 048
  5. PREMARIN [Concomitant]
     Dosage: .625MG PER DAY
     Route: 048
  6. FOLIC ACID [Concomitant]
     Dosage: 1MG TWICE PER DAY
     Route: 048
  7. XANAX [Concomitant]
     Dosage: .5MG AS REQUIRED
     Route: 048
  8. MULTIVITAMIN + CALCIUM [Concomitant]
     Dosage: 15MG WEEKLY
     Route: 048

REACTIONS (10)
  - BLISTER [None]
  - BURNING SENSATION [None]
  - ERYTHEMA [None]
  - ORAL DISCOMFORT [None]
  - ORAL PAIN [None]
  - PAIN IN EXTREMITY [None]
  - PRURITUS [None]
  - RASH [None]
  - SKIN BURNING SENSATION [None]
  - TENDERNESS [None]
